FAERS Safety Report 9378620 (Version 1)
Quarter: 2013Q2

REPORT INFORMATION
  Report Type: Spontaneous
  Country: TW (occurrence: None)
  Receive Date: 20130626
  Receipt Date: 20130626
  Transmission Date: 20140414
  Serious: Yes (Hospitalization)
  Sender: FDA-Public Use
  Company Number: DIAZ20130004

PATIENT
  Age: 30 Year
  Sex: Male

DRUGS (5)
  1. DIAZEPAM (DIAZEPAM) [Suspect]
     Indication: SUICIDE ATTEMPT
     Route: 048
  2. ZOLPIDEM TARTRATE [Suspect]
     Indication: SUICIDE ATTEMPT
     Route: 048
  3. TRAZODONE HYDROCHLORIDE TABLETS (TRAZODONE HYDROCHLORIDE)(TABLETS)(TRAZODONE HYDROCHLORIDE) [Concomitant]
  4. VENLAFAXINE HCL TABLETS (VENLAFAXINE)(UNKNOWN)(VENLAFAXINE) [Concomitant]
  5. MOCLOBEMIDE (MOCLOBEMIDE) [Concomitant]

REACTIONS (15)
  - Serotonin syndrome [None]
  - Intentional overdose [None]
  - Unresponsive to stimuli [None]
  - Loss of consciousness [None]
  - Toxicity to various agents [None]
  - Blood pressure systolic decreased [None]
  - Heart rate increased [None]
  - Body temperature decreased [None]
  - Renal failure acute [None]
  - Hyperkalaemia [None]
  - Metabolic acidosis [None]
  - Rhabdomyolysis [None]
  - Myoclonus [None]
  - Hyperreflexia [None]
  - Dialysis [None]
